FAERS Safety Report 19508574 (Version 2)
Quarter: 2021Q3

REPORT INFORMATION
  Report Type: Spontaneous
  Country: CN (occurrence: CN)
  Receive Date: 20210709
  Receipt Date: 20210825
  Transmission Date: 20211014
  Serious: Yes (Hospitalization, Other)
  Sender: FDA-Public Use
  Company Number: CN-SUN PHARMACEUTICAL INDUSTRIES LTD-2021R1-302651

PATIENT
  Age: 3 Year
  Sex: Male

DRUGS (1)
  1. ATROPINE/DIPHENOXYLATE [Suspect]
     Active Substance: ATROPINE\DIPHENOXYLATE
     Indication: PRODUCT USED FOR UNKNOWN INDICATION
     Dosage: 35 TABLET
     Route: 048
     Dates: start: 20190512

REACTIONS (5)
  - Accidental overdose [Unknown]
  - Generalised tonic-clonic seizure [Recovered/Resolved]
  - Focal dyscognitive seizures [Recovered/Resolved]
  - Respiratory arrest [Recovered/Resolved]
  - Status epilepticus [Recovered/Resolved]

NARRATIVE: CASE EVENT DATE: 20190512
